FAERS Safety Report 24174855 (Version 1)
Quarter: 2024Q3

REPORT INFORMATION
  Report Type: Spontaneous
  Country: DE (occurrence: DE)
  Receive Date: 20240805
  Receipt Date: 20240805
  Transmission Date: 20241016
  Serious: Yes (Other)
  Sender: AMGEN
  Company Number: DE-AMGEN-DEUSP2024152911

PATIENT
  Age: 60 Year
  Sex: Female

DRUGS (2)
  1. LUMAKRAS [Suspect]
     Active Substance: SOTORASIB
     Indication: Non-small cell lung cancer metastatic
     Dosage: 960 MILLIGRAM, QD
     Route: 065
     Dates: start: 202401, end: 2024
  2. LUMAKRAS [Suspect]
     Active Substance: SOTORASIB
     Dosage: UNK, DOSE REDUCTION
     Route: 065
     Dates: start: 2024, end: 202404

REACTIONS (2)
  - Acute kidney injury [Recovering/Resolving]
  - Diarrhoea [Recovering/Resolving]

NARRATIVE: CASE EVENT DATE: 20240101
